FAERS Safety Report 7108352-9 (Version None)
Quarter: 2010Q4

REPORT INFORMATION
  Report Type: 
  Country: None (occurrence: None)
  Receive Date: 20101117
  Receipt Date: 20101110
  Transmission Date: 20110411
  Serious: Yes (Congenital Anomaly)
  Sender: FDA-Public Use
  Company Number: A0680378A

PATIENT
  Sex: Female

DRUGS (4)
  1. PAXIL [Suspect]
     Indication: ANXIETY
     Dosage: 20MG PER DAY
     Dates: start: 19990801, end: 20010701
  2. PRENATAL VITAMINS [Concomitant]
  3. CLARITIN [Concomitant]
     Dates: start: 20010601
  4. XANAX [Concomitant]
     Indication: ANXIETY
     Dosage: 1MG PER DAY
     Dates: start: 20000201, end: 20011001

REACTIONS (7)
  - CONGENITAL CYSTIC KIDNEY DISEASE [None]
  - DRUG EXPOSURE DURING PREGNANCY [None]
  - HEART DISEASE CONGENITAL [None]
  - KIDNEY MALFORMATION [None]
  - RENAL DYSPLASIA [None]
  - URETEROCELE [None]
  - VESICOURETERIC REFLUX [None]
